FAERS Safety Report 7774963-0 (Version None)
Quarter: 2011Q3

REPORT INFORMATION
  Report Type: 
  Country: None (occurrence: None)
  Receive Date: 20110923
  Receipt Date: 20110919
  Transmission Date: 20111222
  Serious: Yes (Death, Other)
  Sender: FDA-Public Use
  Company Number: PHHY2011ES83610

PATIENT
  Age: 78 Year
  Sex: Female

DRUGS (7)
  1. HYDROXYZINE [Concomitant]
     Dosage: UNK
  2. CARBAMAZEPINE [Interacting]
     Indication: RESTLESS LEGS SYNDROME
     Dosage: 100 MG, UNK
  3. DEFLAZACORT [Concomitant]
     Dosage: UNK
  4. CILOSTAZOL [Interacting]
     Dosage: 100 MG, UNK
  5. OMEPRAZOLE [Suspect]
     Dosage: 20 MG, UNK
  6. METHYLPREDNISOLONE [Concomitant]
     Dosage: UNK
  7. CETIRIZINE HCL [Concomitant]
     Dosage: UNK

REACTIONS (12)
  - CARDIO-RESPIRATORY ARREST [None]
  - PYREXIA [None]
  - DRUG INTERACTION [None]
  - SKIN EXFOLIATION [None]
  - LEUKOPENIA [None]
  - STAPHYLOCOCCUS TEST POSITIVE [None]
  - EPIDERMOLYSIS [None]
  - SEPTIC SHOCK [None]
  - LYMPHOPENIA [None]
  - TOXIC EPIDERMAL NECROLYSIS [None]
  - ACINETOBACTER TEST POSITIVE [None]
  - URTICARIA [None]
